FAERS Safety Report 20448144 (Version 1)
Quarter: 2022Q1

REPORT INFORMATION
  Report Type: Spontaneous
  Country: CA (occurrence: CA)
  Receive Date: 20220209
  Receipt Date: 20220209
  Transmission Date: 20220423
  Serious: Yes (Other)
  Sender: FDA-Public Use
  Company Number: None

PATIENT
  Age: 51 Year
  Sex: Female

DRUGS (3)
  1. METHOTREXATE [Suspect]
     Active Substance: METHOTREXATE
     Indication: Granulomatosis with polyangiitis
  2. PREDNISONE [Concomitant]
     Active Substance: PREDNISONE
  3. SEPTRA [Concomitant]
     Active Substance: SULFAMETHOXAZOLE\TRIMETHOPRIM

REACTIONS (7)
  - Dyspnoea [Recovered/Resolved]
  - Haematuria [Recovered/Resolved]
  - Haemorrhage [Recovered/Resolved]
  - Laryngeal stenosis [Recovered/Resolved]
  - Nasal disorder [Recovered/Resolved]
  - Renal impairment [Recovered/Resolved]
  - Off label use [Unknown]
